FAERS Safety Report 10079268 (Version 1)
Quarter: 2014Q2

REPORT INFORMATION
  Report Type: Spontaneous
  Country: US (occurrence: None)
  Receive Date: 20140414
  Receipt Date: 20140414
  Transmission Date: 20141212
  Serious: No
  Sender: FDA-Public Use
  Company Number: None

PATIENT
  Age: 55 Year
  Sex: Female
  Weight: 70.31 kg

DRUGS (1)
  1. SERTRALINE [Suspect]
     Indication: ANXIETY
     Dosage: 1
     Route: 048
     Dates: start: 20140405, end: 20140410

REACTIONS (5)
  - Drug withdrawal syndrome [None]
  - Anxiety [None]
  - Depressed mood [None]
  - Crying [None]
  - Product quality issue [None]
